FAERS Safety Report 23755943 (Version 1)
Quarter: 2024Q2

REPORT INFORMATION
  Report Type: Spontaneous
  Country: US (occurrence: US)
  Receive Date: 20240418
  Receipt Date: 20240418
  Transmission Date: 20240716
  Serious: Yes (Hospitalization, Other)
  Sender: FDA-Public Use
  Company Number: US-MLMSERVICE-20240328-4920497-1

PATIENT

DRUGS (2)
  1. BUPRENORPHINE\NALOXONE [Suspect]
     Active Substance: BUPRENORPHINE\NALOXONE
     Indication: Opiates
     Dosage: UNK
     Route: 065
  2. BUPRENORPHINE\NALOXONE [Suspect]
     Active Substance: BUPRENORPHINE\NALOXONE
     Indication: Pain

REACTIONS (6)
  - Stress cardiomyopathy [Recovering/Resolving]
  - Tachycardia [Recovering/Resolving]
  - Left ventricular dysfunction [Recovering/Resolving]
  - Cardiogenic shock [Recovering/Resolving]
  - Ventricular hypokinesia [Recovering/Resolving]
  - Drug withdrawal syndrome [Recovering/Resolving]
